FAERS Safety Report 25193702 (Version 1)
Quarter: 2025Q2

REPORT INFORMATION
  Report Type: Spontaneous
  Country: JP (occurrence: JP)
  Receive Date: 20250414
  Receipt Date: 20250414
  Transmission Date: 20250717
  Serious: Yes (Other)
  Sender: NOVARTIS
  Company Number: JP-002147023-NVSC2025JP060643

PATIENT

DRUGS (1)
  1. CLOFAZIMINE [Suspect]
     Active Substance: CLOFAZIMINE
     Indication: Atypical mycobacterial infection
     Route: 065

REACTIONS (1)
  - Hyponatraemia [Unknown]
